FAERS Safety Report 4946052-1 (Version None)
Quarter: 2006Q1

REPORT INFORMATION
  Report Type: 
  Country: None (occurrence: None)
  Receive Date: 20060316
  Receipt Date: 20051110
  Transmission Date: 20060701
  Serious: Yes (Hospitalization, Other)
  Sender: FDA-Public Use
  Company Number: US-MERCK-0511USA01881

PATIENT
  Age: 78 Year
  Sex: Male

DRUGS (3)
  1. VIOXX [Suspect]
     Indication: OSTEOARTHRITIS
     Route: 048
     Dates: start: 19990101, end: 20031106
  2. ASPIRIN [Concomitant]
     Route: 065
  3. TOPROL-XL [Concomitant]
     Route: 065

REACTIONS (19)
  - APHASIA [None]
  - ARTHROPATHY [None]
  - ATRIAL FIBRILLATION [None]
  - BACTERAEMIA [None]
  - CEREBROVASCULAR ACCIDENT [None]
  - CHEST PAIN [None]
  - COLON CANCER [None]
  - CORONARY ARTERY DISEASE [None]
  - DEPRESSION [None]
  - GASTROOESOPHAGEAL REFLUX DISEASE [None]
  - HYPERTENSION [None]
  - INTESTINAL HAEMORRHAGE [None]
  - KNEE ARTHROPLASTY [None]
  - NEPHROLITHIASIS [None]
  - PEPTIC ULCER [None]
  - SKIN ULCER [None]
  - SUPERFICIAL INJURY OF EYE [None]
  - THROMBOCYTOPENIA [None]
  - UROSEPSIS [None]
